FAERS Safety Report 24664555 (Version 1)
Quarter: 2024Q4

REPORT INFORMATION
  Report Type: Spontaneous
  Country: US (occurrence: None)
  Receive Date: 20241125
  Receipt Date: 20241125
  Transmission Date: 20250115
  Serious: Yes (Disabling)
  Sender: Public
  Company Number: None

PATIENT
  Age: 41 Year
  Sex: Male
  Weight: 72 kg

DRUGS (1)
  1. FINASTERIDE [Suspect]
     Active Substance: FINASTERIDE
     Indication: Androgenetic alopecia
     Dosage: FREQUENCY : DAILY;?
     Route: 061

REACTIONS (6)
  - Erectile dysfunction [None]
  - Semen volume decreased [None]
  - Anorgasmia [None]
  - Therapy cessation [None]
  - Loss of libido [None]
  - Ejaculation failure [None]

NARRATIVE: CASE EVENT DATE: 20240416
